FAERS Safety Report 15255005 (Version 1)
Quarter: 2018Q3

REPORT INFORMATION
  Report Type: Spontaneous
  Country: US (occurrence: US)
  Receive Date: 20180808
  Receipt Date: 20180808
  Transmission Date: 20181010
  Serious: Yes (Hospitalization, Other)
  Sender: FDA-Public Use
  Company Number: US-GLENMARK PHARMACEUTICALS-2018GMK036893

PATIENT
  Age: 71 Year
  Sex: Male

DRUGS (2)
  1. ROPINIROLE HYDROCHLORIDE. [Suspect]
     Active Substance: ROPINIROLE HYDROCHLORIDE
     Indication: PARKINSON^S DISEASE
     Dosage: 5 MG , TID, TAKING HIS DRT MORE FREQUENTLY THAN PRESCRIBED
     Route: 065
  2. CARBIDOPA W/LEVODOPA [Concomitant]
     Active Substance: CARBIDOPA\LEVODOPA
     Indication: PARKINSON^S DISEASE
     Dosage: 5 DF, OD
     Route: 065

REACTIONS (2)
  - Dopamine dysregulation syndrome [Unknown]
  - Drug abuse [Unknown]
